FAERS Safety Report 6651617-5 (Version None)
Quarter: 2010Q1

REPORT INFORMATION
  Report Type: 
  Country: None (occurrence: None)
  Receive Date: 20100322
  Receipt Date: 20100309
  Transmission Date: 20100710
  Serious: Yes (Hospitalization)
  Sender: FDA-Public Use
  Company Number: 008431

PATIENT
  Sex: Female
  Weight: 45 kg

DRUGS (5)
  1. KEPPRA [Suspect]
     Indication: EPILEPSY
     Dosage: SEE IMAGE
     Dates: start: 20100126, end: 20100201
  2. KEPPRA [Suspect]
     Indication: EPILEPSY
     Dosage: SEE IMAGE
     Dates: start: 20100201, end: 20100204
  3. KEPPRA [Suspect]
     Indication: EPILEPSY
     Dosage: SEE IMAGE
     Dates: start: 20100107
  4. KEPPRA [Suspect]
     Indication: EPILEPSY
     Dosage: SEE IMAGE
     Dates: start: 20100119
  5. MICONAZOLE NITRATE [Concomitant]

REACTIONS (3)
  - GRAND MAL CONVULSION [None]
  - STATUS EPILEPTICUS [None]
  - THERAPEUTIC PRODUCT INEFFECTIVE [None]
